FAERS Safety Report 7589878-0 (Version None)
Quarter: 2011Q3

REPORT INFORMATION
  Report Type: 
  Country: None (occurrence: None)
  Receive Date: 20110705
  Receipt Date: 20110623
  Transmission Date: 20111222
  Serious: Yes (Other)
  Sender: FDA-Public Use
  Company Number: JP-MERCK-1105USA01725

PATIENT

DRUGS (5)
  1. PURSENNID [Concomitant]
     Route: 065
  2. MAGNESIUM OXIDE [Concomitant]
     Route: 065
  3. PANCREAZE [Concomitant]
     Route: 065
  4. PEPCID [Suspect]
     Route: 048
  5. LAC-B [Concomitant]
     Route: 065

REACTIONS (1)
  - APLASIA PURE RED CELL [None]
